FAERS Safety Report 5716594-X (Version None)
Quarter: 2008Q2

REPORT INFORMATION
  Report Type: 
  Country: None (occurrence: None)
  Receive Date: 20080424
  Receipt Date: 20080416
  Transmission Date: 20081010
  Serious: Yes (Hospitalization)
  Sender: FDA-Public Use
  Company Number: US-ELI_LILLY_AND_COMPANY-US200804004282

PATIENT
  Sex: Male

DRUGS (8)
  1. HUMALOG [Suspect]
  2. GLUCAGON [Suspect]
  3. CYMBALTA [Suspect]
     Indication: NEUROPATHY PERIPHERAL
     Dosage: UNK, UNK
     Dates: start: 20071001
  4. LASIX [Concomitant]
  5. ZAROXOLYN [Concomitant]
  6. ASPIRIN [Concomitant]
  7. NORVASC [Concomitant]
  8. LANTUS [Concomitant]

REACTIONS (8)
  - BLOOD GLUCOSE DECREASED [None]
  - DEHYDRATION [None]
  - DIABETIC NEUROPATHY [None]
  - DIZZINESS [None]
  - HYPOAESTHESIA [None]
  - HYPOTENSION [None]
  - IMPLANTABLE DEFIBRILLATOR INSERTION [None]
  - PAIN IN EXTREMITY [None]
